FAERS Safety Report 5456549-6 (Version None)
Quarter: 2007Q3

REPORT INFORMATION
  Report Type: 
  Country: None (occurrence: None)
  Receive Date: 20070918
  Receipt Date: 20070905
  Transmission Date: 20080115
  Serious: Yes (Other)
  Sender: FDA-Public Use
  Company Number: B0482701A

PATIENT
  Sex: Female

DRUGS (5)
  1. PAROXETINE [Suspect]
     Indication: DRUG USE FOR UNKNOWN INDICATION
     Route: 048
     Dates: start: 19991112
  2. PAROXETINE [Suspect]
     Route: 048
  3. FLUOXETINE [Suspect]
     Indication: DEPRESSION
  4. CIPRALEX [Suspect]
  5. SERTRALINE [Suspect]

REACTIONS (14)
  - AGGRESSION [None]
  - ANXIETY [None]
  - DIZZINESS [None]
  - DRUG WITHDRAWAL SYNDROME [None]
  - EYE DISORDER [None]
  - HEADACHE [None]
  - INTENTIONAL OVERDOSE [None]
  - IRRITABILITY [None]
  - MIGRAINE [None]
  - MOOD ALTERED [None]
  - NAUSEA [None]
  - SELF-INJURIOUS IDEATION [None]
  - SUICIDAL IDEATION [None]
  - TEARFULNESS [None]
